FAERS Safety Report 11260820 (Version 1)
Quarter: 2015Q3

REPORT INFORMATION
  Report Type: Spontaneous
  Country: DK (occurrence: DK)
  Receive Date: 20150710
  Receipt Date: 20150710
  Transmission Date: 20151125
  Serious: Yes (Hospitalization)
  Sender: FDA-Public Use
  Company Number: PHHY2015DK078985

PATIENT
  Sex: Female

DRUGS (1)
  1. SPARKAL [Suspect]
     Active Substance: AMILORIDE HYDROCHLORIDE
     Indication: HYPERTENSION
     Dosage: 55 MG, UNK, 50 + 5 MG
     Route: 048
     Dates: end: 20150624

REACTIONS (1)
  - Hypernatraemia [Recovering/Resolving]
